FAERS Safety Report 15189733 (Version 1)
Quarter: 2018Q3

REPORT INFORMATION
  Report Type: Report from Study
  Country: GB (occurrence: GB)
  Receive Date: 20180724
  Receipt Date: 20180724
  Transmission Date: 20181010
  Serious: Yes (Other)
  Sender: FDA-Public Use
  Company Number: GB-SA-2018SA188216

PATIENT
  Age: 58 Year
  Sex: Female

DRUGS (1)
  1. INSULIN GLARGINE [Suspect]
     Active Substance: INSULIN GLARGINE
     Indication: DIABETES MELLITUS
     Dosage: 50 U
     Route: 058
     Dates: start: 201709

REACTIONS (3)
  - Neuropathy peripheral [Not Recovered/Not Resolved]
  - Skin discomfort [Not Recovered/Not Resolved]
  - Maculopathy [Not Recovered/Not Resolved]
